FAERS Safety Report 4279111-X (Version None)
Quarter: 2004Q1

REPORT INFORMATION
  Report Type: 
  Country: None (occurrence: None)
  Receive Date: 20040122
  Receipt Date: 20040106
  Transmission Date: 20041129
  Serious: Yes (Death, Hospitalization)
  Sender: FDA-Public Use
  Company Number: 189972

PATIENT
  Age: 64 Year
  Sex: Female
  Weight: 47.6277 kg

DRUGS (1)
  1. AVONEX [Suspect]
     Indication: MULTIPLE SCLEROSIS
     Dates: start: 20020101, end: 20030501

REACTIONS (1)
  - LUNG NEOPLASM MALIGNANT [None]
